FAERS Safety Report 5751859-7 (Version None)
Quarter: 2008Q2

REPORT INFORMATION
  Report Type: 
  Country: None (occurrence: None)
  Receive Date: 20080529
  Receipt Date: 20080521
  Transmission Date: 20081010
  Serious: Yes (Death, Hospitalization)
  Sender: FDA-Public Use
  Company Number: ES-BAYER-200818756GPV

PATIENT
  Age: 71 Year
  Sex: Male
  Weight: 68 kg

DRUGS (9)
  1. SORAFENIB [Suspect]
     Indication: NON-SMALL CELL LUNG CANCER
     Route: 048
     Dates: start: 20080508, end: 20080513
  2. CISPLATIN [Suspect]
     Indication: NON-SMALL CELL LUNG CANCER
     Route: 042
     Dates: start: 20080508, end: 20080508
  3. GEMCITABINE [Suspect]
     Indication: NON-SMALL CELL LUNG CANCER
     Route: 042
     Dates: start: 20080508, end: 20080508
  4. EMEND [Concomitant]
     Indication: PROPHYLAXIS
     Route: 048
     Dates: start: 20080508, end: 20080508
  5. EMEND [Concomitant]
     Route: 048
     Dates: start: 20080509, end: 20080509
  6. DEXAMETHASONE TAB [Concomitant]
     Indication: PROPHYLAXIS
     Route: 048
     Dates: start: 20080508, end: 20080510
  7. PANTOPRAZOL [Concomitant]
     Indication: PROPHYLAXIS
     Route: 048
     Dates: start: 20080508
  8. NAPROXEN [Concomitant]
     Indication: INFLAMMATION
     Route: 048
     Dates: start: 20080508
  9. TRANSTEC [Concomitant]
     Indication: PAIN
     Route: 065
     Dates: start: 20080508

REACTIONS (4)
  - DYSARTHRIA [None]
  - GAIT DISTURBANCE [None]
  - MENTAL IMPAIRMENT [None]
  - NON-SMALL CELL LUNG CANCER [None]
